APPROVED DRUG PRODUCT: CEFTRIAXONE
Active Ingredient: CEFTRIAXONE SODIUM
Strength: EQ 500MG BASE/VIAL
Dosage Form/Route: INJECTABLE;INTRAMUSCULAR, INTRAVENOUS
Application: A065125 | Product #002
Applicant: LUPIN LTD
Approved: Sep 30, 2003 | RLD: No | RS: No | Type: DISCN